FAERS Safety Report 14156645 (Version 3)
Quarter: 2018Q3

REPORT INFORMATION
  Report Type: Report from Study
  Country: ZA (occurrence: ZA)
  Receive Date: 20171103
  Receipt Date: 20180905
  Transmission Date: 20181010
  Serious: Yes (Life-Threatening, Hospitalization, Other)
  Sender: FDA-Public Use
  Company Number: ZA-BRISTOL-MYERS SQUIBB COMPANY-BMS-2017-016651

PATIENT
  Age: 44 Year
  Sex: Female

DRUGS (1)
  1. ABATACEPT [Suspect]
     Active Substance: ABATACEPT
     Indication: RHEUMATOID ARTHRITIS
     Dosage: 750 MG, QMO
     Route: 042
     Dates: start: 20170223, end: 20180614

REACTIONS (26)
  - Seizure [Unknown]
  - Arthropathy [Unknown]
  - Iron deficiency [Unknown]
  - Hyponatraemia [Unknown]
  - Hypokalaemia [Unknown]
  - Brain injury [Unknown]
  - Ill-defined disorder [Unknown]
  - Headache [Unknown]
  - Pyrexia [Unknown]
  - Gastroenteritis viral [Unknown]
  - Urinary tract infection [Unknown]
  - Pneumothorax [Unknown]
  - Vitamin B complex deficiency [Unknown]
  - Lung infection [Unknown]
  - Sinusitis [Unknown]
  - Bronchitis [Unknown]
  - Oropharyngeal pain [Unknown]
  - Nasal obstruction [Unknown]
  - Influenza [Unknown]
  - Kidney infection [Unknown]
  - Ear infection [Unknown]
  - Chills [Unknown]
  - Dysphonia [Unknown]
  - Respiratory tract infection [Unknown]
  - Chest discomfort [Unknown]
  - Lymphadenopathy [Unknown]

NARRATIVE: CASE EVENT DATE: 201708
